FAERS Safety Report 6158395-7 (Version None)
Quarter: 2009Q2

REPORT INFORMATION
  Report Type: 
  Country: None (occurrence: None)
  Receive Date: 20090417
  Receipt Date: 20090410
  Transmission Date: 20091009
  Serious: Yes (Other)
  Sender: FDA-Public Use
  Company Number: US-ASTRAZENECA-2009UW07019

PATIENT
  Age: 80 Year
  Sex: Male

DRUGS (1)
  1. TOPROL-XL [Suspect]
     Route: 048
     Dates: start: 20050412

REACTIONS (4)
  - CONSTIPATION [None]
  - DIZZINESS [None]
  - HYPOTENSION [None]
  - PROSTATE CANCER [None]
